FAERS Safety Report 7365488-5 (Version None)
Quarter: 2011Q1

REPORT INFORMATION
  Report Type: 
  Country: None (occurrence: None)
  Receive Date: 20110322
  Receipt Date: 20110316
  Transmission Date: 20110831
  Serious: Yes (Death, Hospitalization, Other)
  Sender: FDA-Public Use
  Company Number: US-BAYER-2011-024073

PATIENT
  Age: 22 Year
  Sex: Female

DRUGS (2)
  1. YAZ [Suspect]
     Dosage: UNK
  2. YASMIN [Suspect]

REACTIONS (9)
  - ACUTE LUNG INJURY [None]
  - HYPERKALAEMIA [None]
  - PULMONARY INFARCTION [None]
  - RESPIRATORY DISTRESS [None]
  - CARDIOGENIC SHOCK [None]
  - RESPIRATORY FAILURE [None]
  - PULMONARY HYPERTENSION [None]
  - PULMONARY EMBOLISM [None]
  - PAIN [None]
